FAERS Safety Report 9092116 (Version 1)
Quarter: 2013Q1

REPORT INFORMATION
  Report Type: Report from Study
  Country: US (occurrence: US)
  Receive Date: 20130201
  Receipt Date: 20130201
  Transmission Date: 20140127
  Serious: No
  Sender: FDA-Public Use
  Company Number: US-ABBOTT-12P-163-1023717-00

PATIENT
  Age: 63 Year
  Sex: Male

DRUGS (10)
  1. HUMIRA [Suspect]
     Indication: RHEUMATOID ARTHRITIS
     Dates: start: 2010
  2. ALBUTEROL [Concomitant]
     Indication: ASTHMA
     Dosage: INHALER
  3. UNKNOWN MEDICATION [Concomitant]
     Indication: FREQUENT BOWEL MOVEMENTS
  4. UNKNOWN NOSE SPRAY [Concomitant]
     Indication: PRODUCT USED FOR UNKNOWN INDICATION
  5. PREDNISONE [Concomitant]
     Indication: PRODUCT USED FOR UNKNOWN INDICATION
     Dosage: 3 MG DAILY
  6. BAYER ASPRIN [Concomitant]
     Indication: PRODUCT USED FOR UNKNOWN INDICATION
     Dosage: DAILY
  7. LISINOPRIL [Concomitant]
     Indication: BLOOD PRESSURE
     Dosage: 20 MG DAILY
  8. GLIPIZIDE [Concomitant]
     Indication: DIABETES MELLITUS
  9. OMEPRAZOLE [Concomitant]
     Indication: GASTROOESOPHAGEAL REFLUX DISEASE
     Dosage: 20 MG DAILY
  10. CRESTOR [Concomitant]
     Indication: BLOOD CHOLESTEROL

REACTIONS (2)
  - Psoriasis [Recovered/Resolved]
  - Diabetes mellitus [Recovered/Resolved]
